FAERS Safety Report 10334605 (Version 3)
Quarter: 2014Q3

REPORT INFORMATION
  Report Type: Spontaneous
  Country: IN (occurrence: IN)
  Receive Date: 20140723
  Receipt Date: 20140912
  Transmission Date: 20150326
  Serious: Yes (Disabling)
  Sender: FDA-Public Use
  Company Number: IN-009507513-1407IND007111

PATIENT
  Age: 63 Year
  Sex: Female

DRUGS (1)
  1. FOSAVANCE [Suspect]
     Active Substance: ALENDRONATE SODIUM\CHOLECALCIFEROL
     Dosage: CONSUMED ONLY 1 AND 3 TABLETS ARE LYING UNCONSUMED
     Route: 048

REACTIONS (4)
  - Muscle spasms [Recovered/Resolved]
  - Bedridden [Unknown]
  - Bone pain [Recovered/Resolved]
  - Myalgia [Unknown]
